FAERS Safety Report 4953318-8 (Version None)
Quarter: 2006Q1

REPORT INFORMATION
  Report Type: 
  Country: None (occurrence: None)
  Receive Date: 20060127
  Receipt Date: 20050520
  Transmission Date: 20060701
  Serious: Yes (Death)
  Sender: FDA-Public Use
  Company Number: 05-05-0920

PATIENT
  Age: 35 Year
  Sex: Female

DRUGS (1)
  1. CLOZAPINE [Suspect]
     Indication: SCHIZOPHRENIA, PARANOID TYPE
     Dosage: 75-300MG QD, ORAL
     Route: 048
     Dates: start: 20040301, end: 20050501

REACTIONS (2)
  - HOMICIDE [None]
  - NO ADVERSE DRUG EFFECT [None]
